FAERS Safety Report 9226528 (Version 1)
Quarter: 2013Q2

REPORT INFORMATION
  Report Type: Spontaneous
  Country: US (occurrence: US)
  Receive Date: 20130412
  Receipt Date: 20130412
  Transmission Date: 20140414
  Serious: No
  Sender: FDA-Public Use
  Company Number: US-009507513-1304USA004970

PATIENT
  Age: 51 Year
  Sex: Female
  Weight: 64.4 kg

DRUGS (2)
  1. PEGINTRON [Suspect]
     Dosage: 150 MICROGRAM, QW
     Route: 058
     Dates: start: 20130222
  2. REBETOL [Suspect]
     Dosage: UNK

REACTIONS (4)
  - Weight decreased [Unknown]
  - Fatigue [Unknown]
  - Nausea [Unknown]
  - Headache [Unknown]
